FAERS Safety Report 14352931 (Version 1)
Quarter: 2018Q1

REPORT INFORMATION
  Report Type: Spontaneous
  Country: US (occurrence: US)
  Receive Date: 20180104
  Receipt Date: 20180104
  Transmission Date: 20180509
  Serious: Yes (Hospitalization)
  Sender: FDA-Public Use
  Company Number: US-DENDREON PHARMACEUTICALS LLC-2017DEN000027

PATIENT

DRUGS (1)
  1. PROVENGE [Suspect]
     Active Substance: SIPULEUCEL-T
     Indication: PROSTATE CANCER
     Dosage: 250 ML 1 IN 1 D
     Route: 042
     Dates: start: 20171012, end: 20171012

REACTIONS (5)
  - Hypoxia [Recovered/Resolved]
  - Sleep disorder [Recovered/Resolved]
  - Septic shock [Recovered/Resolved]
  - Fluid retention [Recovered/Resolved]
  - Malaise [Recovered/Resolved]

NARRATIVE: CASE EVENT DATE: 20171021
